FAERS Safety Report 4719114-1 (Version None)
Quarter: 2005Q3

REPORT INFORMATION
  Report Type: 
  Country: None (occurrence: None)
  Receive Date: 20050719
  Receipt Date: 20050705
  Transmission Date: 20060218
  Serious: Yes (Disabling, Other)
  Sender: FDA-Public Use
  Company Number: 1856

PATIENT
  Age: 62 Year
  Sex: Male
  Weight: 76 kg

DRUGS (2)
  1. TARGRETIN [Suspect]
     Indication: MYCOSIS FUNGOIDES
     Dosage: 525 MG DAILY PO
     Route: 048
     Dates: start: 20050414, end: 20050610
  2. TARGRETIN [Suspect]
     Indication: MYCOSIS FUNGOIDES
     Dosage: 300 MG DAILY PO
     Route: 048
     Dates: start: 20050611

REACTIONS (3)
  - ERECTILE DYSFUNCTION [None]
  - LEUKOPENIA [None]
  - LIBIDO DECREASED [None]
